FAERS Safety Report 18564093 (Version 1)
Quarter: 2020Q4

REPORT INFORMATION
  Report Type: Spontaneous
  Country: US (occurrence: US)
  Receive Date: 20201130
  Receipt Date: 20201130
  Transmission Date: 20210114
  Serious: Yes (Other)
  Sender: FDA-Public Use
  Company Number: None

PATIENT

DRUGS (1)
  1. DEXTROAMPHET SACCHARAT, AMPHET ASPARTATE, DEXTROAMPHET SULFATE AND AMPHET SULFAT [Suspect]
     Active Substance: AMPHETAMINE ASPARTATE\AMPHETAMINE SULFATE\DEXTROAMPHETAMINE SACCHARATE\DEXTROAMPHETAMINE SULFATE
     Indication: ATTENTION DEFICIT HYPERACTIVITY DISORDER
     Dosage: ?          QUANTITY:1 TABLET(S);?
     Route: 048
     Dates: start: 20201115, end: 20201130

REACTIONS (15)
  - Feeling abnormal [None]
  - Hypertension [None]
  - Product substitution issue [None]
  - Insomnia [None]
  - Nightmare [None]
  - Product quality issue [None]
  - Chest pain [None]
  - Drug ineffective [None]
  - Condition aggravated [None]
  - Muscle spasms [None]
  - Product colour issue [None]
  - Dizziness [None]
  - Headache [None]
  - Dyspnoea exertional [None]
  - Product size issue [None]

NARRATIVE: CASE EVENT DATE: 20201121
